FAERS Safety Report 15533228 (Version 1)
Quarter: 2018Q4

REPORT INFORMATION
  Report Type: Spontaneous
  Country: US (occurrence: US)
  Receive Date: 20181019
  Receipt Date: 20181019
  Transmission Date: 20190205
  Serious: No
  Sender: FDA-Public Use
  Company Number: US-SANOFI-AVENTIS-2011SA061365

PATIENT
  Age: 43 Year
  Sex: Female

DRUGS (3)
  1. AMBIEN [Suspect]
     Active Substance: ZOLPIDEM TARTRATE
     Indication: INSOMNIA
     Dosage: 10 MG,UNK
     Route: 048
     Dates: start: 201006
  2. AMBIEN [Suspect]
     Active Substance: ZOLPIDEM TARTRATE
     Dosage: 10 MG,1X
     Route: 048
     Dates: start: 20110905, end: 20110905
  3. AMBIEN [Suspect]
     Active Substance: ZOLPIDEM TARTRATE
     Dosage: 6.25 UNK, UNK
     Route: 065

REACTIONS (4)
  - Sleep disorder [Unknown]
  - Incorrect product administration duration [Unknown]
  - Intentional overdose [Unknown]
  - Initial insomnia [Unknown]

NARRATIVE: CASE EVENT DATE: 20110905
